FAERS Safety Report 5090766-2 (Version None)
Quarter: 2006Q3

REPORT INFORMATION
  Report Type: 
  Country: None (occurrence: None)
  Receive Date: 20060823
  Receipt Date: 20060809
  Transmission Date: 20061208
  Serious: Yes (Death, Hospitalization)
  Sender: FDA-Public Use
  Company Number: FABR-11563

PATIENT
  Age: 63 Year
  Sex: Male
  Weight: 60 kg

DRUGS (7)
  1. FABRAZYME [Suspect]
     Indication: FABRY'S DISEASE
     Dosage: 60 MG Q2WKS IV
     Route: 042
     Dates: start: 20050308, end: 20060530
  2. HYDROCORTISONE SODIUM SUCCINATE [Concomitant]
  3. CHLORPHENIRAMINE MALEATE [Concomitant]
  4. TPN [Concomitant]
  5. CARVEDILOL [Concomitant]
  6. FUROSEMIDE [Concomitant]
  7. AMIODARONE HYDROCHLORIDE [Concomitant]

REACTIONS (11)
  - ATRIOVENTRICULAR BLOCK [None]
  - BLOOD PRESSURE DECREASED [None]
  - C-REACTIVE PROTEIN INCREASED [None]
  - DECUBITUS ULCER [None]
  - DISSEMINATED INTRAVASCULAR COAGULATION [None]
  - FIBRIN DEGRADATION PRODUCTS INCREASED [None]
  - JAUNDICE [None]
  - MALNUTRITION [None]
  - PNEUMONIA ASPIRATION [None]
  - SOMNOLENCE [None]
  - SPUTUM PURULENT [None]
